FAERS Safety Report 18472931 (Version 1)
Quarter: 2020Q4

REPORT INFORMATION
  Report Type: Spontaneous
  Country: DE (occurrence: DE)
  Receive Date: 20201106
  Receipt Date: 20201106
  Transmission Date: 20210114
  Serious: Yes (Death, Life-Threatening, Other)
  Sender: FDA-Public Use
  Company Number: DE-SLATE RUN PHARMACEUTICALS-20DE000311

PATIENT

DRUGS (5)
  1. ENOXAPARIN [Concomitant]
     Active Substance: ENOXAPARIN
     Indication: THROMBOSIS PROPHYLAXIS
     Dosage: 40 MILLIGRAM, QD
     Route: 065
  2. HYDROXYCHLOROQUINE [Concomitant]
     Active Substance: HYDROXYCHLOROQUINE
     Indication: COVID-19 PNEUMONIA
     Route: 065
  3. TOCILIZUMAB. [Suspect]
     Active Substance: TOCILIZUMAB
     Indication: CYTOKINE STORM
     Dosage: 600 MILLIGRAM
     Route: 042
  4. TOCILIZUMAB. [Suspect]
     Active Substance: TOCILIZUMAB
     Indication: SHOCK
  5. AZITHROMYCIN USP [Suspect]
     Active Substance: AZITHROMYCIN
     Indication: COVID-19 PNEUMONIA
     Route: 065

REACTIONS (12)
  - Shock [Unknown]
  - Coagulopathy [Unknown]
  - Myocarditis [Unknown]
  - Ventricular extrasystoles [Not Recovered/Not Resolved]
  - Hypotension [Unknown]
  - Acute respiratory distress syndrome [Unknown]
  - Ventricular tachycardia [Not Recovered/Not Resolved]
  - Multiple organ dysfunction syndrome [Fatal]
  - Haemodynamic instability [Unknown]
  - Electrocardiogram ST segment elevation [Unknown]
  - Respiratory failure [Unknown]
  - Off label use [Unknown]

NARRATIVE: CASE EVENT DATE: 2020
